FAERS Safety Report 4536873-1 (Version None)
Quarter: 2004Q4

REPORT INFORMATION
  Report Type: 
  Country: None (occurrence: None)
  Receive Date: 20041223
  Receipt Date: 20041116
  Transmission Date: 20050328
  Serious: Yes (Hospitalization)
  Sender: FDA-Public Use
  Company Number: JP-GLAXOSMITHKLINE-B0358923A

PATIENT
  Age: 74 Year
  Sex: Female

DRUGS (2)
  1. PAXIL [Suspect]
     Indication: DEPRESSION
     Route: 048
     Dates: start: 20040216
  2. LIMAS [Suspect]
     Route: 048
     Dates: start: 20031203

REACTIONS (13)
  - C-REACTIVE PROTEIN INCREASED [None]
  - DEHYDRATION [None]
  - DEPRESSED LEVEL OF CONSCIOUSNESS [None]
  - DIARRHOEA [None]
  - DRUG LEVEL INCREASED [None]
  - FALL [None]
  - HYPERHIDROSIS [None]
  - HYPERREFLEXIA [None]
  - INCONTINENCE [None]
  - PYREXIA [None]
  - SEROTONIN SYNDROME [None]
  - TREMOR [None]
  - WHITE BLOOD CELLS URINE POSITIVE [None]
